FAERS Safety Report 7707666-9 (Version None)
Quarter: 2011Q3

REPORT INFORMATION
  Report Type: 
  Country: None (occurrence: None)
  Receive Date: 20110824
  Receipt Date: 20110817
  Transmission Date: 20111222
  Serious: Yes (Hospitalization)
  Sender: FDA-Public Use
  Company Number: PHHY2011TW74969

PATIENT
  Age: 27 Year
  Sex: Male

DRUGS (2)
  1. ZOLPIDEM [Suspect]
     Dosage: 2000 MG, UNK
     Route: 048
  2. ZOLPIDEM [Suspect]
     Indication: ANXIETY
     Dosage: 10 MG, UNK
     Route: 048

REACTIONS (7)
  - INSOMNIA [None]
  - DRUG WITHDRAWAL SYNDROME [None]
  - SINUS TACHYCARDIA [None]
  - CHEST DISCOMFORT [None]
  - CONFUSIONAL STATE [None]
  - DELIRIUM [None]
  - ANXIETY [None]
